FAERS Safety Report 24389818 (Version 2)
Quarter: 2025Q2

REPORT INFORMATION
  Report Type: Report from Study
  Country: GR (occurrence: GR)
  Receive Date: 20241003
  Receipt Date: 20250401
  Transmission Date: 20250717
  Serious: Yes (Hospitalization, Other)
  Sender: TAKEDA
  Company Number: GR-TAKEDA-2021TUS018970

PATIENT
  Age: 61 Year
  Sex: Female

DRUGS (12)
  1. HUMAN IMMUNOGLOBULIN G\HYALURONIDASE RECOMBINANT HUMAN [Suspect]
     Active Substance: HUMAN IMMUNOGLOBULIN G\HYALURONIDASE (HUMAN RECOMBINANT)
     Indication: Immunodeficiency common variable
     Dosage: 300 MILLILITER, MONTHLY
     Dates: start: 202011
  2. HUMAN IMMUNOGLOBULIN G\HYALURONIDASE RECOMBINANT HUMAN [Suspect]
     Active Substance: HUMAN IMMUNOGLOBULIN G\HYALURONIDASE (HUMAN RECOMBINANT)
     Indication: Immunodeficiency
     Dosage: 300 MILLIGRAM, MONTHLY
     Dates: start: 2020
  3. HUMAN IMMUNOGLOBULIN G\HYALURONIDASE RECOMBINANT HUMAN [Suspect]
     Active Substance: HUMAN IMMUNOGLOBULIN G\HYALURONIDASE (HUMAN RECOMBINANT)
  4. ASPIRIN [Concomitant]
     Active Substance: ASPIRIN
     Dosage: UNK UNK, QD
  5. ENALAPRIL\HYDROCHLOROTHIAZIDE [Concomitant]
     Active Substance: ENALAPRIL\HYDROCHLOROTHIAZIDE
     Indication: Blood pressure measurement
     Dosage: UNK UNK, QD
  6. PRASUGREL HYDROCHLORIDE [Concomitant]
     Active Substance: PRASUGREL HYDROCHLORIDE
     Indication: Coagulopathy
     Dosage: UNK UNK, QD
  7. ROSUVASTATIN [Concomitant]
     Active Substance: ROSUVASTATIN
     Dosage: 3 DOSAGE FORM, QD
  8. BISOPROLOL FUMARATE [Concomitant]
     Active Substance: BISOPROLOL FUMARATE
  9. AMLODIPINE BESYLATE [Concomitant]
     Active Substance: AMLODIPINE BESYLATE
     Indication: Blood pressure measurement
     Dosage: UNK, QD
  10. Ipinzan [Concomitant]
     Indication: Diabetes mellitus
  11. INVOKANA [Concomitant]
     Active Substance: CANAGLIFLOZIN
     Indication: Diabetes mellitus
     Dosage: 100 MILLIGRAM, QD
  12. INVOKANA [Concomitant]
     Active Substance: CANAGLIFLOZIN
     Indication: Cardiac disorder

REACTIONS (16)
  - Fall [Unknown]
  - Hyperplasia adrenal [Unknown]
  - Weight decreased [Unknown]
  - Balance disorder [Unknown]
  - Dizziness [Unknown]
  - COVID-19 [Recovering/Resolving]
  - Administration site inflammation [Recovering/Resolving]
  - Burns second degree [Recovering/Resolving]
  - Injury [Not Recovered/Not Resolved]
  - Blister [Recovering/Resolving]
  - Oxygen saturation decreased [Recovering/Resolving]
  - Blood pressure decreased [Recovering/Resolving]
  - Back pain [Not Recovered/Not Resolved]
  - Cortisol increased [Unknown]
  - General physical health deterioration [Unknown]
  - Mental disorder [Unknown]

NARRATIVE: CASE EVENT DATE: 20240601
